FAERS Safety Report 9392450 (Version 1)
Quarter: 2013Q3

REPORT INFORMATION
  Report Type: Spontaneous
  Country: US (occurrence: None)
  Receive Date: 20130708
  Receipt Date: 20130708
  Transmission Date: 20140515
  Serious: No
  Sender: FDA-Public Use
  Company Number: None

PATIENT
  Age: 83 Year
  Sex: Male
  Weight: 68.04 kg

DRUGS (13)
  1. METOPROLOL ER [Suspect]
     Indication: CARDIAC DISORDER
     Route: 048
     Dates: start: 20130222, end: 20130223
  2. BRIMONIDINE [Concomitant]
  3. DORZOLAMIDE [Concomitant]
  4. GLIMERPRIDE [Concomitant]
  5. AMLODIPINE [Concomitant]
  6. CLOPIDOGREL [Concomitant]
  7. OSOSORBIDE MN [Concomitant]
  8. CARVEDILOL [Concomitant]
  9. CO Q 10 [Concomitant]
  10. FISH OIL [Concomitant]
  11. SPIRULINA [Concomitant]
  12. PROSTATE FORMULA [Concomitant]
  13. CALCIUM/MINERALS [Concomitant]

REACTIONS (3)
  - Rash pruritic [None]
  - Dyspnoea [None]
  - Rash erythematous [None]
